FAERS Safety Report 11193413 (Version 1)
Quarter: 2015Q2

REPORT INFORMATION
  Report Type: Spontaneous
  Country: GR (occurrence: GR)
  Receive Date: 20150616
  Receipt Date: 20150616
  Transmission Date: 20150821
  Serious: Yes (Other)
  Sender: FDA-Public Use
  Company Number: GR-MYLANLABS-2015M1019287

PATIENT

DRUGS (1)
  1. TAMOXIFEN [Suspect]
     Active Substance: TAMOXIFEN
     Indication: BREAST CANCER
     Dosage: 20 MG/DAY
     Route: 065

REACTIONS (3)
  - Blindness [Recovered/Resolved]
  - Macular oedema [Recovered/Resolved]
  - Maculopathy [Recovered/Resolved]
